FAERS Safety Report 18594230 (Version 1)
Quarter: 2020Q4

REPORT INFORMATION
  Report Type: Report from Study
  Country: DE (occurrence: DE)
  Receive Date: 20201209
  Receipt Date: 20201209
  Transmission Date: 20210114
  Serious: Yes (Life-Threatening)
  Sender: FDA-Public Use
  Company Number: DE-BAXTER-2020BAX024607

PATIENT
  Age: 64 Year
  Sex: Male
  Weight: 113.2 kg

DRUGS (8)
  1. HOLOXAN [Suspect]
     Active Substance: IFOSFAMIDE
     Indication: B-CELL LYMPHOMA
     Dosage: INJECTION FOR INFUSION,R-ICE REGIMEN
     Route: 042
     Dates: start: 20201023, end: 20201024
  2. RITUXIMAB. [Suspect]
     Active Substance: RITUXIMAB
     Indication: B-CELL LYMPHOMA
     Dosage: R-GDP REGIMEN
     Route: 042
     Dates: start: 20200925, end: 20200925
  3. GEMCITABINE. [Suspect]
     Active Substance: GEMCITABINE
     Indication: B-CELL LYMPHOMA
     Dosage: R-GDP REGIMEN
     Route: 042
     Dates: start: 20200926, end: 20200926
  4. RITUXIMAB. [Suspect]
     Active Substance: RITUXIMAB
     Dosage: R-ICE REGIMEN
     Route: 042
     Dates: start: 20201022, end: 20201022
  5. ETOPOSIDE. [Suspect]
     Active Substance: ETOPOSIDE
     Indication: B-CELL LYMPHOMA
     Dosage: INJECTION FOR INFUSION. R-ICE REGIMEN
     Route: 042
     Dates: start: 20201022, end: 20201024
  6. CISPLATIN. [Suspect]
     Active Substance: CISPLATIN
     Indication: B-CELL LYMPHOMA
     Dosage: R-GDP REGIMEN
     Route: 042
     Dates: start: 20200926, end: 20200926
  7. DEXAMETHASONE. [Suspect]
     Active Substance: DEXAMETHASONE
     Indication: B-CELL LYMPHOMA
     Dosage: R-GDP REGIMEN
     Route: 042
     Dates: start: 20200926, end: 20200928
  8. CARBOPLATIN. [Suspect]
     Active Substance: CARBOPLATIN
     Indication: B-CELL LYMPHOMA
     Dosage: INJECTION FOR INFUSION. R-ICE REGIMEN
     Route: 042
     Dates: start: 20201023, end: 20201023

REACTIONS (1)
  - Hypertensive emergency [Recovered/Resolved]

NARRATIVE: CASE EVENT DATE: 20201024
